FAERS Safety Report 5099184-4 (Version None)
Quarter: 2006Q3

REPORT INFORMATION
  Report Type: 
  Country: None (occurrence: None)
  Receive Date: 20060728
  Receipt Date: 20060329
  Transmission Date: 20061208
  Serious: No
  Sender: FDA-Public Use
  Company Number: COT_0549_2006

PATIENT
  Age: 71 Year
  Sex: Female
  Weight: 57.1532 kg

DRUGS (11)
  1. VENTAVIS [Suspect]
     Indication: PULMONARY HYPERTENSION
     Dosage: 5 MCG 7TO8X/DAY IH
     Route: 055
     Dates: start: 20051118
  2. LOTREL [Concomitant]
  3. IMDUR [Concomitant]
  4. COREG [Concomitant]
  5. LOVASTATIN [Concomitant]
  6. ARIMIDEX [Concomitant]
  7. FUROSEMIDE [Concomitant]
  8. SPIRIVA [Concomitant]
  9. K-DUR 10 [Concomitant]
  10. TRACLEER [Concomitant]
  11. WARFARIN SODIUM [Concomitant]

REACTIONS (1)
  - LIP PAIN [None]
